FAERS Safety Report 17211427 (Version 1)
Quarter: 2019Q4

REPORT INFORMATION
  Report Type: Spontaneous
  Country: US (occurrence: US)
  Receive Date: 20191228
  Receipt Date: 20191228
  Transmission Date: 20200122
  Serious: No
  Sender: FDA-Public Use
  Company Number: US-INTERSECT ENT, INC.-2078296

PATIENT
  Age: 54 Year
  Sex: Male
  Weight: 74.55 kg

DRUGS (1)
  1. SINUVA [Suspect]
     Active Substance: MOMETASONE FUROATE
     Indication: NASAL POLYPS
     Route: 006
     Dates: start: 20190423

REACTIONS (3)
  - Sinusitis [None]
  - Anosmia [None]
  - Nasal congestion [None]
